FAERS Safety Report 16509499 (Version 6)
Quarter: 2020Q3

REPORT INFORMATION
  Report Type: Spontaneous
  Country: BR (occurrence: BR)
  Receive Date: 20190702
  Receipt Date: 20200717
  Transmission Date: 20201102
  Serious: Yes (Death, Hospitalization, Other)
  Sender: FDA-Public Use
  Company Number: BR-GLAXOSMITHKLINE-BR2019GSK093199

PATIENT
  Age: 78 Year
  Sex: Female
  Weight: 116 kg

DRUGS (1)
  1. NUCALA [Suspect]
     Active Substance: MEPOLIZUMAB
     Indication: ASTHMA
     Dosage: 100 MG, UNK
     Dates: start: 20190211

REACTIONS (19)
  - Pneumonia [Unknown]
  - Lower limb fracture [Unknown]
  - Traumatic fracture [Unknown]
  - Product use issue [Unknown]
  - Death [Fatal]
  - Dyspnoea [Unknown]
  - Joint stabilisation [Unknown]
  - Obesity [Unknown]
  - Femur fracture [Unknown]
  - Bone fragmentation [Unknown]
  - Tachycardia [Unknown]
  - Product dose omission issue [Unknown]
  - Product availability issue [Unknown]
  - Pulmonary embolism [Unknown]
  - Asthma [Unknown]
  - Hypotension [Unknown]
  - Pleuritic pain [Unknown]
  - Hypercoagulation [Unknown]
  - Post procedural complication [Unknown]

NARRATIVE: CASE EVENT DATE: 201904
